FAERS Safety Report 11498339 (Version 3)
Quarter: 2015Q4

REPORT INFORMATION
  Report Type: Spontaneous
  Country: US (occurrence: US)
  Receive Date: 20150911
  Receipt Date: 20151020
  Transmission Date: 20160304
  Serious: Yes (Other)
  Sender: FDA-Public Use
  Company Number: US-GILEAD-2015-0171808

PATIENT
  Age: 43 Year
  Sex: Female

DRUGS (2)
  1. INH-B6 CORBIERE [Concomitant]
     Indication: LATENT TUBERCULOSIS
  2. COMPLERA [Suspect]
     Active Substance: EMTRICITABINE\RILPIVIRINE HYDROCHLORIDE\TENOFOVIR DISOPROXIL FUMARATE
     Indication: HIV INFECTION
     Dosage: UNK
     Route: 065
     Dates: end: 201503

REACTIONS (3)
  - Headache [Recovered/Resolved]
  - Weight increased [Recovered/Resolved]
  - Rash [Recovered/Resolved]
